FAERS Safety Report 13320725 (Version 1)
Quarter: 2017Q1

REPORT INFORMATION
  Report Type: Spontaneous
  Country: US (occurrence: US)
  Receive Date: 20170310
  Receipt Date: 20170310
  Transmission Date: 20170428
  Serious: No
  Sender: FDA-Public Use
  Company Number: None

PATIENT
  Age: 55 Year
  Sex: Female
  Weight: 96.25 kg

DRUGS (17)
  1. HUMIRA [Concomitant]
     Active Substance: ADALIMUMAB
  2. HYDROCODONE W. APAP [Concomitant]
  3. SLEEP GELS [Concomitant]
  4. FOLIC ACID. [Concomitant]
     Active Substance: FOLIC ACID
  5. METHOTREXTE [Concomitant]
  6. ENALAPRIL [Concomitant]
     Active Substance: ENALAPRIL
  7. SULFASALAZINE. [Concomitant]
     Active Substance: SULFASALAZINE
  8. TYLENOL X STRENGTH [Concomitant]
  9. EMERGEN-C [Concomitant]
     Active Substance: VITAMINS
  10. LANTUS [Concomitant]
     Active Substance: INSULIN GLARGINE
  11. PRAVASTATIN. [Concomitant]
     Active Substance: PRAVASTATIN
  12. GABAPENTIN. [Concomitant]
     Active Substance: GABAPENTIN
  13. GEODON [Concomitant]
     Active Substance: ZIPRASIDONE HYDROCHLORIDE\ZIPRASIDONE MESYLATE
  14. HUMIRA [Suspect]
     Active Substance: ADALIMUMAB
     Indication: RHEUMATOID ARTHRITIS
     Dosage: ?          QUANTITY:L 5H ENTERED?WEEKS;?
     Dates: start: 20161126, end: 20170110
  15. WARFARIN [Concomitant]
     Active Substance: WARFARIN
  16. BUSPIRONE [Concomitant]
     Active Substance: BUSPIRONE HYDROCHLORIDE
  17. GLYCLOBEZAPRINE [Concomitant]

REACTIONS (4)
  - Skin ulcer [None]
  - Contusion [None]
  - Skin mass [None]
  - Skin exfoliation [None]

NARRATIVE: CASE EVENT DATE: 20161126
